FAERS Safety Report 5032118-7 (Version None)
Quarter: 2006Q2

REPORT INFORMATION
  Report Type: 
  Country: None (occurrence: None)
  Receive Date: 20060619
  Receipt Date: 20060605
  Transmission Date: 20061013
  Serious: Yes (Other)
  Sender: FDA-Public Use
  Company Number: 163-20785-06060510

PATIENT

DRUGS (3)
  1. THALIDOMIDE (THALIDOMIDE) (CAPSULES) [Suspect]
     Indication: RENAL CANCER METASTATIC
     Dosage: 200 TO 400 MG AT BEDTIME, ORAL
     Route: 048
  2. INTERFERON (INTERFERON) (INJECTION) [Suspect]
     Indication: RENAL CANCER METASTATIC
     Dosage: 1 MIU, DAILY, SUBCUTANEOUS
     Route: 058
  3. CAPECITABINE (CAPECITABINE) [Suspect]
     Indication: RENAL CANCER METASTATIC
     Dosage: 1,900 MG/M2 PER DAY IN 2 DAILY DOSES, 2 WEEKS ON AND 1 WEEK OFF, ORAL
     Route: 048

REACTIONS (1)
  - METABOLIC ACIDOSIS [None]
